FAERS Safety Report 13797044 (Version 2)
Quarter: 2019Q2

REPORT INFORMATION
  Report Type: Report from Study
  Country: NL (occurrence: NL)
  Receive Date: 20170727
  Receipt Date: 20190613
  Transmission Date: 20190711
  Serious: Yes (Other)
  Sender: FDA-Public Use
  Company Number: NL-AMGEN-NLDSL2017110712

PATIENT
  Age: 77 Year
  Sex: Female

DRUGS (5)
  1. ARANESP [Suspect]
     Active Substance: DARBEPOETIN ALFA
     Indication: ANAEMIA OF MALIGNANT DISEASE
     Dosage: 500 MUG (500MCG/ML 1.0ML), Q4WK
     Route: 058
  2. ARANESP [Suspect]
     Active Substance: DARBEPOETIN ALFA
     Dosage: 500 UNK, Q3WK
     Route: 058
  3. FASLODEX [Concomitant]
     Active Substance: FULVESTRANT
  4. ARANESP [Suspect]
     Active Substance: DARBEPOETIN ALFA
     Dosage: UNK
     Route: 058
  5. IBRANCE [Concomitant]
     Active Substance: PALBOCICLIB

REACTIONS (2)
  - Hepatic neoplasm [Not Recovered/Not Resolved]
  - Haemoglobin abnormal [Unknown]

NARRATIVE: CASE EVENT DATE: 20170706
